FAERS Safety Report 13803566 (Version 1)
Quarter: 2017Q3

REPORT INFORMATION
  Report Type: Spontaneous
  Country: US (occurrence: US)
  Receive Date: 20170728
  Receipt Date: 20170728
  Transmission Date: 20171127
  Serious: No
  Sender: FDA-Public Use
  Company Number: US-TEVA-771208ACC

PATIENT
  Sex: Female
  Weight: 72.6 kg

DRUGS (3)
  1. LETAIRIS [Suspect]
     Active Substance: AMBRISENTAN
     Dosage: 10 MILLIGRAM DAILY;
     Dates: start: 201608
  2. DILTIAZEM. [Suspect]
     Active Substance: DILTIAZEM
     Route: 065
  3. REMODULIN [Suspect]
     Active Substance: TREPROSTINIL
     Indication: PULMONARY HYPERTENSION
     Route: 041
     Dates: start: 20160829

REACTIONS (1)
  - Epistaxis [Unknown]
